FAERS Safety Report 11181317 (Version 1)
Quarter: 2015Q2

REPORT INFORMATION
  Report Type: Spontaneous
  Country: US (occurrence: None)
  Receive Date: 20150610
  Receipt Date: 20150610
  Transmission Date: 20150821
  Serious: Yes (Congenital Anomaly)
  Sender: FDA-Public Use
  Company Number: None

PATIENT
  Age: 29 Year
  Sex: Female
  Weight: 61.24 kg

DRUGS (1)
  1. LAMICTAL [Suspect]
     Active Substance: LAMOTRIGINE
     Indication: SEIZURE
     Route: 048
     Dates: start: 20100101, end: 20150608

REACTIONS (3)
  - Maternal exposure during pregnancy [None]
  - Anencephaly [None]
  - Maternal drugs affecting foetus [None]

NARRATIVE: CASE EVENT DATE: 20150407
